FAERS Safety Report 19361781 (Version 1)
Quarter: 2021Q2

REPORT INFORMATION
  Report Type: Spontaneous
  Country: NL (occurrence: FR)
  Receive Date: 20210601
  Receipt Date: 20210601
  Transmission Date: 20210717
  Serious: Yes (Hospitalization)
  Sender: FDA-Public Use
  Company Number: FR-FRESENIUS KABI-FK202105392

PATIENT
  Age: 87 Year
  Sex: Female
  Weight: 44.6 kg

DRUGS (2)
  1. LEVOFLOXACIN (MANUFACTURER UNKNOWN) [Suspect]
     Active Substance: LEVOFLOXACIN
     Indication: DYSPNOEA
     Route: 065
     Dates: start: 20210426
  2. TOZINAMERAN. [Suspect]
     Active Substance: TOZINAMERAN
     Indication: COVID-19 IMMUNISATION
     Dosage: DISPERSION TO DILUTE FOR INJECTION. ARNM COVID19 VACCINE (NUCLEOSIDE MODIFIED)
     Route: 030
     Dates: start: 20210504

REACTIONS (1)
  - Deep vein thrombosis [Not Recovered/Not Resolved]

NARRATIVE: CASE EVENT DATE: 20210506
